FAERS Safety Report 19711557 (Version 4)
Quarter: 2021Q4

REPORT INFORMATION
  Report Type: Spontaneous
  Country: JP (occurrence: JP)
  Receive Date: 20210817
  Receipt Date: 20211118
  Transmission Date: 20220303
  Serious: Yes (Death, Hospitalization, Other)
  Sender: FDA-Public Use
  Company Number: JP-BAYER-2021-194518

PATIENT
  Age: 59 Year
  Sex: Male

DRUGS (2)
  1. STIVARGA [Suspect]
     Active Substance: REGORAFENIB
     Indication: Rectal cancer
     Dosage: UNK
     Dates: start: 20210719, end: 20210729
  2. STIVARGA [Suspect]
     Active Substance: REGORAFENIB
     Indication: Metastases to lung
     Dosage: 1 TABLET REDUCE
     Dates: start: 20210730, end: 20210731

REACTIONS (6)
  - Rectal cancer [Fatal]
  - Hydronephrosis [Fatal]
  - Renal impairment [Unknown]
  - Palmar-plantar erythrodysaesthesia syndrome [Recovered/Resolved]
  - Blister [Recovered/Resolved]
  - Skin fissures [Recovered/Resolved]

NARRATIVE: CASE EVENT DATE: 20210730
